FAERS Safety Report 7544961-0 (Version None)
Quarter: 2011Q2

REPORT INFORMATION
  Report Type: 
  Country: None (occurrence: None)
  Receive Date: 20110614
  Receipt Date: 20110104
  Transmission Date: 20111010
  Serious: Yes (Hospitalization)
  Sender: FDA-Public Use
  Company Number: BE-BAYER-201034569GPV

PATIENT
  Age: 75 Year
  Sex: Male
  Weight: 84 kg

DRUGS (15)
  1. SORAFENIB (RAF KINASE INHIBITOR) [Suspect]
     Dosage: 400 MG, BID
     Route: 048
     Dates: start: 20100802, end: 20100805
  2. GAVISCON [Concomitant]
     Indication: ABDOMINAL PAIN
     Dosage: 250MG/5ML
     Route: 048
     Dates: start: 20100727
  3. PLACEBO [Suspect]
     Indication: HEPATIC NEOPLASM MALIGNANT
     Dosage: 150 MG (DAILY DOSE), QD, ORAL
     Route: 048
     Dates: start: 20100720, end: 20100729
  4. PLAVIX [Concomitant]
     Indication: CORONARY ANGIOPLASTY
  5. GLURENORM [Concomitant]
     Indication: DIABETES MELLITUS
     Dosage: 30 MG (DAILY DOSE), QD, ORAL
     Route: 048
     Dates: start: 20040101
  6. PLACEBO [Suspect]
     Dosage: 100 MG, QD
     Route: 048
     Dates: start: 20100802, end: 20100805
  7. ZESTORETIC [Concomitant]
     Indication: HYPERTENSION
     Dosage: AS USED DOSE: 20/12.5 MG
     Route: 048
     Dates: start: 20100201
  8. SORAFENIB (RAF KINASE INHIBITOR) [Suspect]
     Indication: HEPATIC NEOPLASM MALIGNANT
     Dosage: 400 MG, BID
     Route: 048
     Dates: start: 20100720, end: 20100729
  9. PLAVIX [Concomitant]
     Indication: STENT PLACEMENT
     Dosage: 75 MG (DAILY DOSE), QD, ORAL
     Route: 048
     Dates: start: 20040101
  10. HALCION [Concomitant]
     Indication: INSOMNIA
     Dosage: 0.25 MG (DAILY DOSE), QD, ORAL
     Route: 048
     Dates: start: 20060401, end: 20100729
  11. MOTILIUM [Concomitant]
     Indication: ABDOMINAL PAIN
     Dosage: 10 MG (DAILY DOSE), QD, ORAL
     Route: 048
     Dates: start: 20100727
  12. RANITIDINE [Concomitant]
     Indication: OESOPHAGITIS
     Dosage: 150 MG (DAILY DOSE), QD, ORAL
     Route: 048
     Dates: start: 20040101
  13. KREDEX [Concomitant]
     Indication: HYPERTENSION
     Dosage: 25 MG (DAILY DOSE), QD, ORAL
     Route: 048
     Dates: start: 20040101
  14. PROVERA [Concomitant]
     Indication: DECREASED APPETITE
     Dosage: 500 NOT APPLICABLE (DAILY DOSE), , ORAL
     Route: 048
     Dates: start: 20100727, end: 20100729
  15. TAMSULOSIN HCL [Concomitant]
     Indication: BENIGN PROSTATIC HYPERPLASIA
     Dosage: 0.4 MG (DAILY DOSE), QD, ORAL
     Route: 048
     Dates: start: 20050101

REACTIONS (1)
  - CONFUSIONAL STATE [None]
